FAERS Safety Report 5512048-4 (Version None)
Quarter: 2007Q4

REPORT INFORMATION
  Report Type: 
  Country: None (occurrence: None)
  Receive Date: 20071109
  Receipt Date: 20071105
  Transmission Date: 20080405
  Serious: Yes (Hospitalization)
  Sender: FDA-Public Use
  Company Number: GB-BOEHRINGER INGELHEIM PHARMACEUTICALS, INC.-2007-DE-06554GD

PATIENT
  Age: 68 Year
  Sex: Male

DRUGS (4)
  1. TIOTROPIUM-BROMIDE [Suspect]
     Indication: CHRONIC OBSTRUCTIVE PULMONARY DISEASE
     Route: 055
     Dates: start: 20031210
  2. CORDARONE [Concomitant]
  3. THROMBO ASS [Concomitant]
  4. ARIFON [Concomitant]

REACTIONS (6)
  - ABDOMINAL PAIN [None]
  - COLONIC POLYP [None]
  - DIARRHOEA [None]
  - IRRITABLE BOWEL SYNDROME [None]
  - PROCTOCOLITIS [None]
  - SYNCOPE [None]
